FAERS Safety Report 13821460 (Version 5)
Quarter: 2017Q4

REPORT INFORMATION
  Report Type: Spontaneous
  Country: JP (occurrence: JP)
  Receive Date: 20170801
  Receipt Date: 20171017
  Transmission Date: 20180320
  Serious: Yes (Death, Other)
  Sender: FDA-Public Use
  Company Number: JP-009507513-1707JPN001663J

PATIENT
  Age: 53 Year
  Sex: Male
  Weight: 53 kg

DRUGS (3)
  1. RINDERON V [Concomitant]
     Active Substance: BETAMETHASONE VALERATE
     Indication: NON-SMALL CELL LUNG CANCER
     Dosage: 2 MG, BID
     Route: 051
     Dates: start: 20170412, end: 20170531
  2. KEYTRUDA [Suspect]
     Active Substance: PEMBROLIZUMAB
     Indication: NON-SMALL CELL LUNG CANCER
     Dosage: 200 MG, Q3W
     Route: 041
     Dates: start: 20170404, end: 2017
  3. SERENACE [Concomitant]
     Active Substance: HALOPERIDOL
     Indication: NAUSEA
     Route: 065

REACTIONS (4)
  - Headache [Unknown]
  - Myasthenia gravis [Unknown]
  - Altered state of consciousness [Fatal]
  - Meningitis [Unknown]

NARRATIVE: CASE EVENT DATE: 2017
